FAERS Safety Report 10059727 (Version 1)
Quarter: 2014Q2

REPORT INFORMATION
  Report Type: Report from Study
  Country: BR (occurrence: BR)
  Receive Date: 20140404
  Receipt Date: 20140404
  Transmission Date: 20141212
  Serious: Yes (Other)
  Sender: FDA-Public Use
  Company Number: PHHY2014BR040111

PATIENT
  Sex: Female
  Weight: 100 kg

DRUGS (3)
  1. DIOVAN [Suspect]
     Indication: HYPERTENSION
     Dosage: 1 DF, DAILY
  2. INDAPEN                                 /TUR/ [Concomitant]
     Indication: HYPERTENSION
     Dosage: 1 DF, UNK (1.5 MG)
  3. TENSALIV [Concomitant]
     Indication: HYPERTENSION
     Dosage: 1 DF, UNK (10 MG)

REACTIONS (6)
  - Diabetes mellitus [Not Recovered/Not Resolved]
  - Glaucoma [Not Recovered/Not Resolved]
  - Blindness [Not Recovered/Not Resolved]
  - Blood pressure increased [Not Recovered/Not Resolved]
  - Blood pressure inadequately controlled [Not Recovered/Not Resolved]
  - Blood pressure fluctuation [Not Recovered/Not Resolved]
